FAERS Safety Report 10244169 (Version 2)
Quarter: 2014Q3

REPORT INFORMATION
  Report Type: Spontaneous
  Country: US (occurrence: US)
  Receive Date: 20140618
  Receipt Date: 20140811
  Transmission Date: 20150326
  Serious: No
  Sender: FDA-Public Use
  Company Number: US-009507513-1406USA008985

PATIENT
  Sex: Female
  Weight: 66.21 kg

DRUGS (2)
  1. OXYTROL FOR WOMEN [Suspect]
     Active Substance: OXYBUTYNIN
     Indication: MICTURITION URGENCY
  2. OXYTROL FOR WOMEN [Suspect]
     Active Substance: OXYBUTYNIN
     Indication: URINARY INCONTINENCE
     Dosage: UNK, UNKNOWN
     Route: 062
     Dates: start: 201405, end: 201406

REACTIONS (4)
  - Erythema [Unknown]
  - Unevaluable event [Recovered/Resolved]
  - Exposure during pregnancy [Unknown]
  - Pruritus [Unknown]

NARRATIVE: CASE EVENT DATE: 2014
